FAERS Safety Report 7134828-4 (Version None)
Quarter: 2010Q4

REPORT INFORMATION
  Report Type: 
  Country: None (occurrence: None)
  Receive Date: 20101203
  Receipt Date: 20101129
  Transmission Date: 20110411
  Serious: Yes (Life-Threatening, Hospitalization, Disabling)
  Sender: FDA-Public Use
  Company Number: ES-JNJFOC-20100903524

PATIENT
  Sex: Male
  Weight: 43 kg

DRUGS (1)
  1. CONCERTA [Suspect]
     Indication: ATTENTION DEFICIT/HYPERACTIVITY DISORDER
     Route: 048

REACTIONS (7)
  - APHASIA [None]
  - DYSTONIA [None]
  - HEMIPARESIS [None]
  - ISCHAEMIC CEREBRAL INFARCTION [None]
  - VASCULITIS CEREBRAL [None]
  - VIITH NERVE PARALYSIS [None]
  - VISUAL FIELD DEFECT [None]
